FAERS Safety Report 17585591 (Version 1)
Quarter: 2020Q1

REPORT INFORMATION
  Report Type: Spontaneous
  Country: DE (occurrence: DE)
  Receive Date: 20200326
  Receipt Date: 20200326
  Transmission Date: 20200409
  Serious: Yes (Other)
  Sender: FDA-Public Use
  Company Number: DE-MYLANLABS-2020M1031614

PATIENT
  Age: 51 Year
  Sex: Male

DRUGS (5)
  1. FENOFIBRATE. [Suspect]
     Active Substance: FENOFIBRATE
     Indication: HYPERTRIGLYCERIDAEMIA
     Dosage: UNK
     Route: 065
  2. PEG/L-ASPARAGINASE [Suspect]
     Active Substance: PEGASPARGASE
     Indication: PRODUCT USED FOR UNKNOWN INDICATION
     Dosage: 2.06 INTERNATIONAL UNIT, TOTAL
     Route: 065
  3. OMEGA-3 FATTY ACIDS [Suspect]
     Active Substance: OMEGA-3 FATTY ACIDS
     Indication: HYPERTRIGLYCERIDAEMIA
     Dosage: UNK
     Route: 065
  4. HEPARIN [Concomitant]
     Active Substance: HEPARIN SODIUM
     Indication: HYPERTRIGLYCERIDAEMIA
     Dosage: UNK
     Route: 042
  5. DEXAMETHASONE. [Concomitant]
     Active Substance: DEXAMETHASONE
     Indication: PRODUCT USED FOR UNKNOWN INDICATION
     Dosage: UNK

REACTIONS (4)
  - Hypertriglyceridaemia [Recovered/Resolved]
  - Condition aggravated [Recovered/Resolved]
  - Hepatotoxicity [Unknown]
  - Drug ineffective [Unknown]
